FAERS Safety Report 4847852-9 (Version None)
Quarter: 2005Q4

REPORT INFORMATION
  Report Type: 
  Country: None (occurrence: None)
  Receive Date: 20051207
  Receipt Date: 20050804
  Transmission Date: 20060501
  Serious: Yes (Other)
  Sender: FDA-Public Use
  Company Number: PHEH2005US09104

PATIENT
  Age: 67 Year
  Sex: Female

DRUGS (9)
  1. AREDIA [Suspect]
     Indication: OSTEOPOROSIS
     Dosage: 90 UNK, Q3WEEKS
     Dates: start: 20011031, end: 20020128
  2. ZOMETA [Suspect]
     Indication: OSTEOPOROSIS
     Dosage: 4 UNK, Q3WEEKS
     Dates: start: 20020218, end: 20031201
  3. CYTOXAN [Concomitant]
     Indication: LYMPHOMA
     Dosage: 650 MG/M2, Q3WEEKS
     Dates: start: 20011105, end: 20020218
  4. ADRIAMYCIN PFS [Concomitant]
     Indication: LYMPHOMA
     Dosage: 25 MG/M2, Q3WEEKS
     Dates: start: 20011105, end: 20020218
  5. VP-16 [Concomitant]
     Indication: LYMPHOMA
     Dosage: 120 MG/M2, Q3WEEKS
     Dates: start: 20011105, end: 20020218
  6. CYTARABINE [Concomitant]
     Indication: LYMPHOMA
     Dosage: 300 MG/M2, Q3WEEKS
     Dates: start: 20011112, end: 20020225
  7. BLEOMYCIN [Concomitant]
     Indication: LYMPHOMA
     Dosage: 5 U/M^2 Q3WEEKS
     Dates: start: 20011112, end: 20020225
  8. VINCRISTINE [Concomitant]
     Indication: LYMPHOMA
     Dosage: 1.4 MG/M2, Q3WEEKS
     Dates: start: 20011112, end: 20020225
  9. METHOTREXATE [Concomitant]
     Indication: LYMPHOMA
     Dosage: 120 MG/M2, Q3WEEKS
     Dates: start: 20011112, end: 20020225

REACTIONS (11)
  - BONE DEBRIDEMENT [None]
  - BONE DISORDER [None]
  - ENANTHEMA [None]
  - IMPAIRED HEALING [None]
  - ORAL PAIN [None]
  - OSTEOMYELITIS [None]
  - OSTEONECROSIS [None]
  - SEQUESTRECTOMY [None]
  - SWELLING [None]
  - TOOTH DISORDER [None]
  - TOOTH EXTRACTION [None]
